FAERS Safety Report 9725488 (Version 1)
Quarter: 2013Q4

REPORT INFORMATION
  Report Type: Spontaneous
  Country: US (occurrence: None)
  Receive Date: 20131202
  Receipt Date: 20131202
  Transmission Date: 20140711
  Serious: No
  Sender: FDA-Public Use
  Company Number: None

PATIENT
  Age: 46 Year
  Sex: Male
  Weight: 72.58 kg

DRUGS (2)
  1. MIRVASO [Suspect]
     Indication: ROSACEA
     Dosage: SMALL AMOUNT ONCE DAILY APPLIED TO A SURFACE, USUALLY THE SKIN
     Dates: start: 20131125, end: 20131128
  2. MIRVASO [Suspect]
     Indication: ERYTHEMA
     Dosage: SMALL AMOUNT ONCE DAILY APPLIED TO A SURFACE, USUALLY THE SKIN
     Dates: start: 20131125, end: 20131128

REACTIONS (7)
  - Rebound effect [None]
  - Erythema [None]
  - Flushing [None]
  - Fear [None]
  - Anger [None]
  - Skin burning sensation [None]
  - Skin tightness [None]
